FAERS Safety Report 24909551 (Version 1)
Quarter: 2025Q1

REPORT INFORMATION
  Report Type: Spontaneous
  Country: US (occurrence: None)
  Receive Date: 20250130
  Receipt Date: 20250130
  Transmission Date: 20250409
  Serious: Yes (Hospitalization)
  Sender: FDA-CTU
  Company Number: None

PATIENT
  Sex: Male

DRUGS (1)
  1. PEGASYS [Suspect]
     Active Substance: PEGINTERFERON ALFA-2A
     Indication: Essential thrombocythaemia
     Dosage: 150MCG ONCE WEEKLY SUBCUTANEOUS
     Route: 058
     Dates: start: 202201

REACTIONS (3)
  - Headache [None]
  - Migraine [None]
  - Blindness unilateral [None]
